FAERS Safety Report 9973581 (Version 2)
Quarter: 2014Q1

REPORT INFORMATION
  Report Type: Spontaneous
  Country: JP (occurrence: JP)
  Receive Date: 20140306
  Receipt Date: 20140311
  Transmission Date: 20141002
  Serious: Yes (Other)
  Sender: FDA-Public Use
  Company Number: JP-PFIZER INC-2014063949

PATIENT
  Age: 58 Year
  Sex: Male

DRUGS (10)
  1. LYRICA [Suspect]
     Indication: CENTRAL PAIN SYNDROME
     Dosage: 75 MG, DAILY
     Route: 048
     Dates: start: 20120820, end: 20120923
  2. LYRICA [Suspect]
     Dosage: 150 MG, DAILY
     Route: 048
     Dates: start: 20120924, end: 201304
  3. LYRICA [Suspect]
     Dosage: 175 MG, DAILY
     Route: 048
     Dates: start: 201304, end: 20130626
  4. LYRICA [Suspect]
     Dosage: 225 MG, DAILY
     Route: 048
     Dates: start: 20130627, end: 20130825
  5. LYRICA [Suspect]
     Dosage: 300 MG, DAILY
     Route: 048
     Dates: start: 20130826
  6. ALLOPURINOL [Concomitant]
     Indication: CRYSTALLURIA
  7. LANDSEN [Concomitant]
     Indication: CENTRAL PAIN SYNDROME
  8. FAMOTIDINE [Concomitant]
     Indication: GASTRITIS
  9. SENNOSIDE [Concomitant]
     Indication: CONSTIPATION
  10. METHYCOBAL [Concomitant]
     Indication: CENTRAL PAIN SYNDROME

REACTIONS (2)
  - Off label use [Unknown]
  - Hallucination, visual [Unknown]
